FAERS Safety Report 21047460 (Version 2)
Quarter: 2022Q3

REPORT INFORMATION
  Report Type: Spontaneous
  Country: LB (occurrence: LB)
  Receive Date: 20220706
  Receipt Date: 20220714
  Transmission Date: 20221027
  Serious: Yes (Other)
  Sender: FDA-Public Use
  Company Number: LB-BAYER-2022P006520

PATIENT
  Age: 15 Year

DRUGS (1)
  1. LAROTRECTINIB [Suspect]
     Active Substance: LAROTRECTINIB
     Indication: Brain neoplasm
     Dates: start: 20210728, end: 20220608

REACTIONS (1)
  - Brain neoplasm [None]
